FAERS Safety Report 7551611-6 (Version None)
Quarter: 2011Q2

REPORT INFORMATION
  Report Type: 
  Country: None (occurrence: None)
  Receive Date: 20110616
  Receipt Date: 20110602
  Transmission Date: 20111010
  Serious: Yes (Other)
  Sender: FDA-Public Use
  Company Number: US-JNJFOC-20110406002

PATIENT
  Sex: Male

DRUGS (1)
  1. REMICADE [Suspect]
     Indication: ANKYLOSING SPONDYLITIS
     Route: 042
     Dates: start: 20030101

REACTIONS (8)
  - PRESYNCOPE [None]
  - DYSPNOEA [None]
  - FEELING COLD [None]
  - CHEST DISCOMFORT [None]
  - BLOOD PRESSURE INCREASED [None]
  - FEELING HOT [None]
  - MALAISE [None]
  - NONSPECIFIC REACTION [None]
